FAERS Safety Report 10365728 (Version 1)
Quarter: 2014Q3

REPORT INFORMATION
  Report Type: Spontaneous
  Country: US (occurrence: None)
  Receive Date: 20140804
  Receipt Date: 20140804
  Transmission Date: 20150326
  Serious: No
  Sender: FDA-Public Use
  Company Number: None

PATIENT
  Age: 33 Year
  Sex: Male
  Weight: 86.18 kg

DRUGS (1)
  1. TERBINAFINE 250MG TABLETS [Suspect]
     Active Substance: TERBINAFINE
     Indication: ANTIFUNGAL TREATMENT
     Dosage: 1  ONCE DAILY TAKEN BY MOUTH
     Route: 048

REACTIONS (6)
  - Rash [None]
  - Abdominal discomfort [None]
  - Abdominal pain upper [None]
  - Fatigue [None]
  - Vomiting [None]
  - Nausea [None]

NARRATIVE: CASE EVENT DATE: 20140803
